FAERS Safety Report 8952310 (Version 3)
Quarter: 2013Q2

REPORT INFORMATION
  Report Type: Report from Study
  Country: AR (occurrence: AR)
  Receive Date: 20121205
  Receipt Date: 20130422
  Transmission Date: 20140414
  Serious: Yes (Death, Hospitalization, Other)
  Sender: FDA-Public Use
  Company Number: AR-SHIRE-ALL1-2012-06068

PATIENT
  Age: 25 Year
  Sex: Male
  Weight: 36.7 kg

DRUGS (1)
  1. IDURSULFASE [Suspect]
     Indication: MUCOPOLYSACCHARIDOSIS II
     Dosage: UNK UNK, 1X/WEEK
     Route: 041
     Dates: start: 20070118, end: 20121107

REACTIONS (5)
  - Cardio-respiratory arrest [Fatal]
  - Obstructive airways disorder [Fatal]
  - Bradycardia [Not Recovered/Not Resolved]
  - Anaphylactic reaction [Recovered/Resolved]
  - Respiratory failure [Fatal]
